FAERS Safety Report 8478114-9 (Version None)
Quarter: 2012Q2

REPORT INFORMATION
  Report Type: 
  Country: None (occurrence: None)
  Receive Date: 20120629
  Receipt Date: 20120625
  Transmission Date: 20120825
  Serious: Yes (Life-Threatening)
  Sender: FDA-Public Use
  Company Number: IE-PFIZER INC-2012032535

PATIENT
  Age: 44 Year
  Sex: Female
  Weight: 122 kg

DRUGS (3)
  1. OMACOR [Concomitant]
     Indication: BLOOD CHOLESTEROL
     Dosage: 100 G, UNK
     Route: 048
     Dates: start: 20120101
  2. TOVIAZ [Suspect]
     Indication: HYPERTONIC BLADDER
     Dosage: 8 MG ONCE/TWICE DAILY
     Route: 048
     Dates: start: 20110201, end: 20120201
  3. MOVIPREP [Concomitant]
     Dosage: 13
     Route: 048

REACTIONS (2)
  - DEPRESSION [None]
  - SUICIDAL IDEATION [None]
